FAERS Safety Report 19915146 (Version 3)
Quarter: 2022Q1

REPORT INFORMATION
  Report Type: Spontaneous
  Country: US (occurrence: US)
  Receive Date: 20211004
  Receipt Date: 20220302
  Transmission Date: 20220423
  Serious: Yes (Life-Threatening)
  Sender: FDA-Public Use
  Company Number: US-PFIZER INC-202101235025

PATIENT
  Age: 62 Year
  Sex: Male

DRUGS (1)
  1. LIDOCAINE HYDROCHLORIDE [Suspect]
     Active Substance: LIDOCAINE HYDROCHLORIDE
     Dosage: 2 %

REACTIONS (5)
  - Occupational exposure to product [Unknown]
  - Dyspnoea [Unknown]
  - Choking sensation [Recovered/Resolved]
  - Hypersensitivity [Unknown]
  - Product use issue [Unknown]
